FAERS Safety Report 7923876-X (Version None)
Quarter: 2011Q4

REPORT INFORMATION
  Report Type: 
  Country: None (occurrence: None)
  Receive Date: 20111117
  Receipt Date: 20110209
  Transmission Date: 20120403
  Serious: No
  Sender: FDA-Public Use
  Company Number: US-AMGEN-USASP2011007897

PATIENT
  Age: 46 Year
  Sex: Female

DRUGS (2)
  1. ENBREL [Suspect]
     Indication: RHEUMATOID ARTHRITIS
     Dosage: 50 MG, QWK
     Dates: start: 20110130
  2. METHOTREXATE [Concomitant]
     Dates: start: 20100101

REACTIONS (8)
  - OROPHARYNGEAL PAIN [None]
  - INJECTION SITE PAIN [None]
  - FATIGUE [None]
  - RHEUMATOID ARTHRITIS [None]
  - HEADACHE [None]
  - NAUSEA [None]
  - COUGH [None]
  - NIGHT SWEATS [None]
